FAERS Safety Report 10174675 (Version 1)
Quarter: 2014Q2

REPORT INFORMATION
  Report Type: Spontaneous
  Country: FR (occurrence: FR)
  Receive Date: 20140515
  Receipt Date: 20140515
  Transmission Date: 20141212
  Serious: Yes (Hospitalization)
  Sender: FDA-Public Use
  Company Number: FR-GLAXOSMITHKLINE-B0991315A

PATIENT
  Age: 74 Year
  Sex: Female

DRUGS (1)
  1. ARIXTRA [Suspect]
     Indication: ISCHAEMIC STROKE
     Route: 058

REACTIONS (3)
  - Haemorrhage intracranial [Unknown]
  - Off label use [Unknown]
  - Incorrect drug administration duration [Unknown]
